FAERS Safety Report 10059272 (Version 3)
Quarter: 2014Q2

REPORT INFORMATION
  Report Type: Spontaneous
  Country: IT (occurrence: IT)
  Receive Date: 20140404
  Receipt Date: 20140528
  Transmission Date: 20141212
  Serious: Yes (Life-Threatening, Hospitalization, Other)
  Sender: FDA-Public Use
  Company Number: IT-PFIZER INC-2014092164

PATIENT
  Age: 64 Year
  Sex: Male
  Weight: 110 kg

DRUGS (8)
  1. METFORMIN HCL [Suspect]
     Indication: DIABETES MELLITUS
     Dosage: 2 G, DAILY
     Route: 048
     Dates: start: 20130110, end: 20140206
  2. RAMIPRIL [Interacting]
     Indication: MYOCARDIAL ISCHAEMIA
     Dosage: UNK
     Route: 065
     Dates: start: 20130701, end: 20140206
  3. FUROSEMIDE [Interacting]
     Indication: MYOCARDIAL ISCHAEMIA
     Dosage: 1 DF, DAILY
     Route: 065
     Dates: start: 20130701, end: 20140206
  4. COMPETACT [Interacting]
     Indication: DIABETES MELLITUS
     Dosage: 2 DF, DAILY
     Route: 048
     Dates: start: 20130701, end: 20140206
  5. DILATREND [Concomitant]
     Dosage: 1 DF, UNK
     Route: 048
     Dates: start: 20130701, end: 20140206
  6. CARDIOASPIRIN [Concomitant]
     Dosage: 1 DF, UNK
     Route: 048
     Dates: start: 20130701, end: 20140206
  7. LEVEMIR [Concomitant]
     Dosage: 20 IU (LESS THAN 100), UNK
     Route: 058
  8. SIVASTIN [Concomitant]
     Dosage: 1 DF (10MG FILM COATED TABLET), UNK
     Dates: start: 20130701, end: 20140206

REACTIONS (4)
  - Drug interaction [Recovering/Resolving]
  - Lactic acidosis [Recovering/Resolving]
  - Renal failure acute [Recovering/Resolving]
  - Blood creatinine increased [Recovering/Resolving]
